FAERS Safety Report 7681399-X (Version None)
Quarter: 2011Q3

REPORT INFORMATION
  Report Type: 
  Country: None (occurrence: None)
  Receive Date: 20110809
  Receipt Date: 20110805
  Transmission Date: 20111222
  Serious: Yes (Death, Hospitalization)
  Sender: FDA-Public Use
  Company Number: 2011SP028528

PATIENT
  Age: 69 Year
  Sex: Male

DRUGS (4)
  1. KEPPRA [Concomitant]
  2. TEMODAL [Suspect]
     Indication: GLIOBLASTOMA
     Dosage: 270 MG; OD, 140 MG;QD;PO
     Dates: start: 20110201, end: 20110201
  3. TEMODAL [Suspect]
     Indication: GLIOBLASTOMA
     Dosage: 270 MG; OD, 140 MG;QD;PO
     Dates: start: 20110323, end: 20110415
  4. BACTRIM [Suspect]
     Indication: PROPHYLACTIC CHEMOTHERAPY
     Dosage: 1 DF, TID,PO
     Dates: start: 20110322, end: 20110505

REACTIONS (8)
  - BLOOD CULTURE POSITIVE [None]
  - CYTOLYTIC HEPATITIS [None]
  - BONE MARROW FAILURE [None]
  - STENOTROPHOMONAS TEST POSITIVE [None]
  - CHOLESTASIS [None]
  - DRUG ERUPTION [None]
  - FEBRILE BONE MARROW APLASIA [None]
  - BACTERIAL TEST POSITIVE [None]
